FAERS Safety Report 23113578 (Version 2)
Quarter: 2023Q4

REPORT INFORMATION
  Report Type: Spontaneous
  Country: FR (occurrence: None)
  Receive Date: 20231027
  Receipt Date: 20231110
  Transmission Date: 20240109
  Serious: Yes (Hospitalization)
  Sender: FDA-Public Use
  Company Number: 2023A238146

PATIENT
  Age: 62 Year
  Sex: Male
  Weight: 97 kg

DRUGS (2)
  1. IMFINZI [Suspect]
     Active Substance: DURVALUMAB
     Indication: Hepatocellular carcinoma
     Dosage: 1500.0MG ONCE/SINGLE ADMINISTRATION
     Route: 040
     Dates: start: 20230721, end: 20230721
  2. IMJUDO [Suspect]
     Active Substance: TREMELIMUMAB\TREMELIMUMAB-ACTL
     Indication: Hepatocellular carcinoma
     Dosage: 300.0MG ONCE/SINGLE ADMINISTRATION
     Route: 040
     Dates: start: 20230721, end: 20230721

REACTIONS (2)
  - Rheumatoid arthritis [Recovered/Resolved]
  - Agranulocytosis [Recovered/Resolved]

NARRATIVE: CASE EVENT DATE: 20230724
